FAERS Safety Report 26139271 (Version 2)
Quarter: 2025Q4

REPORT INFORMATION
  Report Type: Spontaneous
  Country: EU (occurrence: EU)
  Receive Date: 20251210
  Receipt Date: 20251215
  Transmission Date: 20260118
  Serious: Yes (Hospitalization, Other)
  Sender: GILEAD
  Company Number: None

PATIENT
  Age: 62 Year
  Sex: Female
  Weight: 42 kg

DRUGS (1)
  1. TRODELVY [Suspect]
     Active Substance: SACITUZUMAB GOVITECAN-HZIY
     Indication: HER2 positive breast cancer
     Dosage: 10 MG/KG REDUCED FROM THE OUTSET TO 85% OF THE THEORETICAL  DOSE (= 360 MG)
     Route: 042
     Dates: start: 20241212, end: 20241212

REACTIONS (2)
  - Jaundice [Not Recovered/Not Resolved]
  - Hepatic cytolysis [Not Recovered/Not Resolved]

NARRATIVE: CASE EVENT DATE: 20241217
